FAERS Safety Report 10059572 (Version 1)
Quarter: 2014Q2

REPORT INFORMATION
  Report Type: Spontaneous
  Country: US (occurrence: US)
  Receive Date: 20140404
  Receipt Date: 20140404
  Transmission Date: 20141212
  Serious: No
  Sender: FDA-Public Use
  Company Number: US-009507513-1404USA001110

PATIENT
  Sex: 0

DRUGS (2)
  1. ZETIA [Suspect]
     Dosage: UNK
     Route: 048
     Dates: start: 201402
  2. CRESTOR [Concomitant]
     Dosage: UNK
     Route: 048
     Dates: start: 2013, end: 2014

REACTIONS (2)
  - Blood creatine phosphokinase increased [Unknown]
  - Adverse event [Unknown]
